FAERS Safety Report 7222010-1 (Version None)
Quarter: 2011Q1

REPORT INFORMATION
  Report Type: 
  Country: None (occurrence: None)
  Receive Date: 20110112
  Receipt Date: 20110104
  Transmission Date: 20110831
  Serious: Yes (Hospitalization)
  Sender: FDA-Public Use
  Company Number: US-ELI_LILLY_AND_COMPANY-US200907006726

PATIENT
  Sex: Female

DRUGS (6)
  1. ENALAPRIL MALEATE [Concomitant]
  2. FORTEO [Suspect]
     Dosage: 20 UG, DAILY (1/D)
     Dates: end: 20101101
  3. RECLAST [Concomitant]
     Indication: ARTHRALGIA
     Dosage: UNK, OTHER
  4. AMLODIPINE BESYLATE [Concomitant]
     Dosage: 10 MG, DAILY (1/D)
  5. FORTEO [Suspect]
     Indication: OSTEOPOROSIS
     Dosage: 20 UG, DAILY (1/D)
  6. FORTEO [Suspect]
     Dosage: 20 UG, DAILY (1/D)

REACTIONS (3)
  - MUSCLE SPASMS [None]
  - HIP ARTHROPLASTY [None]
  - VISUAL ACUITY REDUCED [None]
